FAERS Safety Report 21958767 (Version 5)
Quarter: 2024Q3

REPORT INFORMATION
  Report Type: Spontaneous
  Country: US (occurrence: US)
  Receive Date: 20230206
  Receipt Date: 20240925
  Transmission Date: 20241017
  Serious: No
  Sender: PFIZER
  Company Number: US-PFIZER INC-2020306156

PATIENT
  Age: 73 Year
  Sex: Female
  Weight: 97.52 kg

DRUGS (1)
  1. IBRANCE [Suspect]
     Active Substance: PALBOCICLIB
     Indication: Breast cancer metastatic
     Dosage: 125 MG, CYCLIC (ONCE A DAY BY MOUTH FOR 21 DAYS AND 7 DAYS OFF)
     Route: 048
     Dates: start: 2020

REACTIONS (5)
  - Dysphagia [Unknown]
  - Cough [Unknown]
  - Hypersensitivity [Unknown]
  - Brain fog [Not Recovered/Not Resolved]
  - Tooth extraction [Unknown]
